FAERS Safety Report 8120888-0 (Version None)
Quarter: 2012Q1

REPORT INFORMATION
  Report Type: 
  Country: None (occurrence: None)
  Receive Date: 20120203
  Receipt Date: 20120124
  Transmission Date: 20120608
  Serious: No
  Sender: FDA-Public Use
  Company Number: 1000027384

PATIENT
  Sex: Male

DRUGS (4)
  1. LEXAPRO [Suspect]
  2. ADDERALL 10 [Suspect]
  3. DEXILANT [Suspect]
  4. ZETIA [Suspect]

REACTIONS (1)
  - ANORGASMIA [None]
